FAERS Safety Report 7126120-9 (Version None)
Quarter: 2010Q4

REPORT INFORMATION
  Report Type: 
  Country: None (occurrence: None)
  Receive Date: 20101129
  Receipt Date: 20101116
  Transmission Date: 20110411
  Serious: Yes (Hospitalization)
  Sender: FDA-Public Use
  Company Number: FR-JNJFOC-20101108260

PATIENT
  Sex: Male

DRUGS (5)
  1. IXPRIM [Suspect]
     Indication: TOOTHACHE
     Route: 048
  2. IBUPROFEN [Suspect]
     Indication: TOOTHACHE
     Route: 048
  3. FELDENE [Concomitant]
  4. ANAESTHETICS, LOCAL [Concomitant]
  5. FUSIDATE SODIUM [Concomitant]

REACTIONS (2)
  - OEDEMA PERIPHERAL [None]
  - TOXIC SKIN ERUPTION [None]
